FAERS Safety Report 6668571-2 (Version None)
Quarter: 2010Q2

REPORT INFORMATION
  Report Type: 
  Country: None (occurrence: None)
  Receive Date: 20100406
  Receipt Date: 20100401
  Transmission Date: 20101027
  Serious: Yes (Hospitalization, Disabling)
  Sender: FDA-Public Use
  Company Number: US-PERRIGO-10US008026

PATIENT
  Sex: Female
  Weight: 55.782 kg

DRUGS (1)
  1. OXYMETAZOLINE HYDROCHLORIDE EXTRA MOIST 0.05% 065 [Suspect]
     Indication: NASAL CONGESTION
     Dosage: 1 SPRAY ONCE EACH NOSTRIL
     Route: 045
     Dates: start: 20100309, end: 20100309

REACTIONS (14)
  - ARTERIOSPASM CORONARY [None]
  - ASTHENIA [None]
  - CARDIAC DISORDER [None]
  - CHEST PAIN [None]
  - DECREASED APPETITE [None]
  - FATIGUE [None]
  - HYPERSENSITIVITY [None]
  - MYOCARDIAL INFARCTION [None]
  - MYOCLONUS [None]
  - NAUSEA [None]
  - PALPITATIONS [None]
  - TROPONIN INCREASED [None]
  - VOMITING [None]
  - WEIGHT DECREASED [None]
